FAERS Safety Report 5242453-5 (Version None)
Quarter: 2007Q1

REPORT INFORMATION
  Report Type: 
  Country: None (occurrence: None)
  Receive Date: 20070221
  Receipt Date: 20070214
  Transmission Date: 20070707
  Serious: Yes (Hospitalization, Disabling)
  Sender: FDA-Public Use
  Company Number: ZA-BRISTOL-MYERS SQUIBB COMPANY-13672464

PATIENT
  Age: 41 Year
  Sex: Female
  Weight: 75 kg

DRUGS (6)
  1. ARIPIPRAZOLE [Suspect]
     Indication: BIPOLAR DISORDER
     Route: 048
     Dates: start: 20061203, end: 20070201
  2. VALPROATE SODIUM [Suspect]
  3. LORAZEPAM [Concomitant]
     Dates: start: 20070126, end: 20070201
  4. PROPRANOLOL [Concomitant]
     Dates: start: 20070126, end: 20070201
  5. BUPROPION HCL [Concomitant]
     Dosage: 02-FEB-2007 - ONGOING
     Dates: start: 20070126, end: 20070201
  6. SERTRALINE [Concomitant]
     Dates: start: 20070202

REACTIONS (1)
  - MAJOR DEPRESSION [None]
